FAERS Safety Report 9593646 (Version 1)
Quarter: 2013Q4

REPORT INFORMATION
  Report Type: Spontaneous
  Country: US (occurrence: US)
  Receive Date: 20131004
  Receipt Date: 20131004
  Transmission Date: 20140711
  Serious: No
  Sender: FDA-Public Use
  Company Number: US-009507513-1309USA012606

PATIENT
  Age: 82 Year
  Sex: Male

DRUGS (13)
  1. NASONEX [Suspect]
     Indication: SINUSITIS
     Dosage: TWO SPRAYS IN EACH NOSTRIL DAILY
     Route: 045
     Dates: start: 20130901
  2. ASMANEX TWISTHALER [Concomitant]
     Route: 055
  3. FUROSEMIDE [Concomitant]
     Dosage: UNK
     Route: 048
  4. COZAAR [Concomitant]
     Route: 048
  5. PRILOSEC [Concomitant]
     Route: 048
  6. RAPAFLO [Concomitant]
  7. PROAIR (ALBUTEROL SULFATE) [Concomitant]
  8. TRAVATAN Z [Concomitant]
  9. DICLOFENAC [Concomitant]
  10. TRAMADOL HYDROCHLORIDE [Concomitant]
  11. CLINDAMYCIN [Concomitant]
  12. ASPIRIN [Concomitant]
     Dosage: ONE BABY ASPIRIN
  13. BENADRYL [Concomitant]

REACTIONS (1)
  - Drug ineffective [Unknown]
